FAERS Safety Report 4361225-7 (Version None)
Quarter: 2004Q2

REPORT INFORMATION
  Report Type: 
  Country: None (occurrence: None)
  Receive Date: 20040518
  Receipt Date: 20040429
  Transmission Date: 20050107
  Serious: Yes (Hospitalization)
  Sender: FDA-Public Use
  Company Number: MEDI-0001762

PATIENT
  Age: 4 Month
  Sex: Male
  Weight: 4.6 kg

DRUGS (2)
  1. SYNAGIS (PALIVIZUMAB) [Suspect]
     Indication: ANTIVIRAL PROPHYLAXIS
     Dosage: SEE IMAGE
     Route: 030
     Dates: start: 20031101, end: 20031212
  2. SYNAGIS (PALIVIZUMAB) [Suspect]
     Indication: ANTIVIRAL PROPHYLAXIS
     Dosage: SEE IMAGE
     Route: 030
     Dates: start: 20031101

REACTIONS (1)
  - BRONCHIAL OBSTRUCTION [None]
